FAERS Safety Report 5005510-4 (Version None)
Quarter: 2006Q2

REPORT INFORMATION
  Report Type: 
  Country: None (occurrence: None)
  Receive Date: 20060518
  Receipt Date: 20060426
  Transmission Date: 20061013
  Serious: Yes (Hospitalization)
  Sender: FDA-Public Use
  Company Number: DE-ROCHE-445696

PATIENT
  Age: 77 Year
  Sex: Female
  Weight: 69 kg

DRUGS (4)
  1. BONIVA [Suspect]
     Indication: OSTEOPOROSIS
     Route: 048
     Dates: start: 20060329, end: 20060329
  2. CONCOR 5 [Concomitant]
     Route: 048
     Dates: start: 20040615
  3. TORSEMIDE [Concomitant]
     Route: 048
     Dates: start: 20050815
  4. ASPIRIN [Concomitant]
     Dosage: DRUG NAME REPROTED AS 'ASS100'
     Route: 048

REACTIONS (2)
  - ABDOMINAL PAIN [None]
  - GASTROENTERITIS [None]
